FAERS Safety Report 5419602-9 (Version None)
Quarter: 2007Q3

REPORT INFORMATION
  Report Type: 
  Country: None (occurrence: None)
  Receive Date: 20070816
  Receipt Date: 20070816
  Transmission Date: 20080115
  Serious: No
  Sender: FDA-Public Use
  Company Number: None

PATIENT
  Sex: Female
  Weight: 77.5651 kg

DRUGS (1)
  1. LEVOTHYROXINE 0.150 MG MYLAN [Suspect]
     Indication: POST PROCEDURAL HYPOTHYROIDISM
     Dosage: 0.150 MG DAILY PO
     Route: 048
     Dates: start: 20070710, end: 20070718

REACTIONS (5)
  - ANXIETY [None]
  - FEELING ABNORMAL [None]
  - HEADACHE [None]
  - INSOMNIA [None]
  - NERVOUSNESS [None]
